FAERS Safety Report 8972385 (Version 2)
Quarter: 2012Q4

REPORT INFORMATION
  Report Type: Report from Study
  Country: DE (occurrence: JP)
  Receive Date: 20121219
  Receipt Date: 20121228
  Transmission Date: 20130627
  Serious: Yes (Death)
  Sender: FDA-Public Use
  Company Number: JP-FRI-1000041016

PATIENT
  Sex: Male

DRUGS (12)
  1. MEMANTINE [Suspect]
     Indication: DEMENTIA ALZHEIMER^S TYPE
     Dosage: 5mg
     Route: 048
     Dates: start: 20121031, end: 20121106
  2. MEMANTINE [Suspect]
     Indication: DEMENTIA ALZHEIMER^S TYPE
     Dosage: 10mg
     Route: 048
     Dates: start: 20121107, end: 20121113
  3. MEMANTINE [Suspect]
     Indication: DEMENTIA ALZHEIMER^S TYPE
     Dosage: 15mg
     Route: 048
     Dates: start: 20121114, end: 20121120
  4. MEMANTINE [Suspect]
     Indication: DEMENTIA ALZHEIMER^S TYPE
     Dosage: 20mg
     Route: 048
     Dates: start: 20121121, end: 20121201
  5. DEPAKENE [Concomitant]
     Dosage: 100mg
     Route: 048
     Dates: start: 20121005, end: 20121201
  6. RISPERDAL [Concomitant]
     Dosage: 1mg
     Route: 048
     Dates: end: 20121201
  7. FUROSEMIDE [Concomitant]
     Dosage: 10mg
     Route: 048
     Dates: end: 20121201
  8. TAMSULOSIN HYDROCHLORIDE [Concomitant]
     Dosage: 0.2mg
     Route: 048
     Dates: end: 20121201
  9. WARFARIN [Concomitant]
     Dosage: 3mg
     Route: 048
     Dates: end: 20121201
  10. VASOLAN [Concomitant]
     Dosage: 80mg
     Route: 048
     Dates: end: 20121201
  11. TULOBUTEROL [Concomitant]
     Dosage: 2mg
     Route: 062
     Dates: end: 20121201
  12. LASIX [Concomitant]
     Dosage: 10mg
     Route: 048
     Dates: start: 20121120, end: 20121201

REACTIONS (1)
  - Cardiac failure acute [Fatal]
